FAERS Safety Report 5747378-4 (Version None)
Quarter: 2008Q2

REPORT INFORMATION
  Report Type: 
  Country: None (occurrence: None)
  Receive Date: 20080523
  Receipt Date: 20080522
  Transmission Date: 20081010
  Serious: Yes (Life-Threatening, Hospitalization)
  Sender: FDA-Public Use
  Company Number: ES-JNJFOC-20080504480

PATIENT
  Age: 74 Year
  Sex: Female

DRUGS (5)
  1. RISPERDAL [Suspect]
     Indication: INSOMNIA
     Route: 048
  2. ALPRAZOLAM [Interacting]
     Indication: DEPRESSION
     Route: 048
  3. ALDACTONE [Concomitant]
     Indication: HEPATIC CIRRHOSIS
     Route: 048
  4. LANTUS [Concomitant]
     Indication: DRUG USE FOR UNKNOWN INDICATION
  5. SEGURIL [Concomitant]
     Indication: HEPATIC CIRRHOSIS
     Route: 048

REACTIONS (2)
  - DRUG INTERACTION [None]
  - ENCEPHALOPATHY [None]
